FAERS Safety Report 9686226 (Version 2)
Quarter: 2014Q4

REPORT INFORMATION
  Report Type: Spontaneous
  Country: US (occurrence: US)
  Receive Date: 20131113
  Receipt Date: 20141203
  Transmission Date: 20150529
  Serious: Yes (Hospitalization)
  Sender: FDA-Public Use
  Company Number: PHHY2013US127670

PATIENT
  Age: 43 Year
  Sex: Female

DRUGS (1)
  1. LOPERAMIDE [Suspect]
     Active Substance: LOPERAMIDE
     Indication: DRUG DEPENDENCE
     Dosage: 140 DF, UNK
     Route: 065

REACTIONS (4)
  - Drug abuse [Unknown]
  - Ventricular tachycardia [Unknown]
  - Syncope [Unknown]
  - Torsade de pointes [Unknown]
